FAERS Safety Report 9397489 (Version 1)
Quarter: 2013Q3

REPORT INFORMATION
  Report Type: Spontaneous
  Country: GB (occurrence: GB)
  Receive Date: 20130712
  Receipt Date: 20130712
  Transmission Date: 20140515
  Serious: Yes (Life-Threatening)
  Sender: FDA-Public Use
  Company Number: GB-BAYER-2013-083610

PATIENT
  Age: 90 Year
  Sex: Female
  Weight: 54 kg

DRUGS (13)
  1. CIPROXIN [Suspect]
     Dosage: UNK
     Dates: start: 20130625
  2. BENDROFLUMETHIAZIDE [Concomitant]
     Dosage: UNK
     Dates: start: 20130228, end: 20130514
  3. BISOPROLOL [Concomitant]
     Dosage: UNK
     Dates: start: 20130318
  4. DOSULEPIN [Concomitant]
     Dosage: UNK
     Dates: start: 20130318
  5. DOXAZOSIN [Concomitant]
     Dosage: UNK
     Dates: start: 20130318
  6. HYDROCORTISONE [Concomitant]
     Dosage: UNK
     Dates: start: 20130514, end: 20130515
  7. INDAPAMIDE [Concomitant]
     Dosage: UNK
     Dates: start: 20130507, end: 20130606
  8. IRBESARTAN [Concomitant]
     Dosage: UNK
     Dates: start: 20130319
  9. MEBEVERINE HYDROCHLORIDE [Concomitant]
     Dosage: UNK
     Dates: start: 20130318
  10. NATRILIX [Concomitant]
     Dosage: UNK
     Dates: start: 20130515, end: 20130614
  11. NITROFURANTOIN [Concomitant]
     Dosage: UNK
     Dates: start: 20130625
  12. PARACETAMOL [Concomitant]
     Dosage: UNK
     Dates: start: 20130318
  13. RANITIDINE [Concomitant]
     Dosage: UNK
     Dates: start: 20130507, end: 20130606

REACTIONS (2)
  - Syncope [Unknown]
  - Hypotension [Recovered/Resolved]
